FAERS Safety Report 4437153-5 (Version None)
Quarter: 2004Q3

REPORT INFORMATION
  Report Type: 
  Country: None (occurrence: None)
  Receive Date: 20040830
  Receipt Date: 20040511
  Transmission Date: 20050211
  Serious: Yes (Hospitalization, Other)
  Sender: FDA-Public Use
  Company Number: PHRM2004FR01830

PATIENT
  Age: 10 Year
  Sex: Male
  Weight: 30 kg

DRUGS (7)
  1. SIMULECT [Suspect]
     Indication: GRAFT VERSUS HOST DISEASE
     Dosage: 20 MG, ONCE/SINGLE (DAY1)
     Route: 042
     Dates: start: 20040415, end: 20040415
  2. SIMULECT [Suspect]
     Dosage: 20 MG, ONCE/SINGLE (DAY 4)
     Route: 042
     Dates: start: 20040418, end: 20040418
  3. SIMULECT [Suspect]
     Dosage: 20 MG, ONCE/SINGLE (DAY 11)
     Route: 042
     Dates: start: 20040424, end: 20040424
  4. SIMULECT [Suspect]
     Dosage: 40 MG, ONCE/SINGLE (DAY 18)
     Route: 042
     Dates: start: 20040501, end: 20040501
  5. CORTICOSTEROID NOS [Suspect]
  6. NEORAL [Suspect]
  7. ADALAT [Suspect]

REACTIONS (5)
  - ACUTE PULMONARY OEDEMA [None]
  - INFECTION [None]
  - INFLAMMATION [None]
  - PLEURAL EFFUSION [None]
  - PLEURISY [None]
